FAERS Safety Report 11427620 (Version 1)
Quarter: 2015Q3

REPORT INFORMATION
  Report Type: Spontaneous
  Country: US (occurrence: US)
  Receive Date: 20150828
  Receipt Date: 20150828
  Transmission Date: 20151125
  Serious: Yes (Other)
  Sender: FDA-Public Use
  Company Number: US-HOSPIRA-2983530

PATIENT
  Age: 12 Month

DRUGS (3)
  1. CISPLATIN. [Concomitant]
     Active Substance: CISPLATIN
     Indication: HEPATOBLASTOMA
  2. VINCRISTINE SULFATE. [Suspect]
     Active Substance: VINCRISTINE SULFATE
     Indication: HEPATOBLASTOMA
  3. 5-FLUOROURACIL                     /00098801/ [Concomitant]
     Active Substance: FLUOROURACIL
     Indication: HEPATOBLASTOMA

REACTIONS (4)
  - Gross motor delay [Unknown]
  - Condition aggravated [Unknown]
  - VIth nerve paralysis [Unknown]
  - Stridor [Unknown]
